FAERS Safety Report 15215250 (Version 2)
Quarter: 2018Q3

REPORT INFORMATION
  Report Type: Spontaneous
  Country: ES (occurrence: ES)
  Receive Date: 20180730
  Receipt Date: 20180920
  Transmission Date: 20181010
  Serious: Yes (Death, Hospitalization, Other)
  Sender: FDA-Public Use
  Company Number: ES-PFIZER INC-2018302879

PATIENT
  Age: 78 Year
  Sex: Female

DRUGS (10)
  1. SEGURIL [Concomitant]
     Active Substance: FUROSEMIDE
     Indication: CARDIAC FAILURE
     Dosage: 40 MG, 2X/DAY
     Dates: start: 2011
  2. RAMIPRIL. [Concomitant]
     Active Substance: RAMIPRIL
     Indication: CARDIAC FAILURE
     Dosage: 5 MG, 1X/DAY
     Dates: start: 201510
  3. ALPRAZOLAM. [Concomitant]
     Active Substance: ALPRAZOLAM
     Dosage: 0.5 MG, 1X/DAY (QD)
  4. LANTUS [Concomitant]
     Active Substance: INSULIN GLARGINE
     Indication: TYPE 2 DIABETES MELLITUS
     Dosage: UNK
     Dates: start: 2009
  5. SINTROM [Suspect]
     Active Substance: ACENOCOUMAROL
     Dosage: UNK
     Dates: end: 20160329
  6. PARACETAMOL [Concomitant]
     Active Substance: ACETAMINOPHEN
     Indication: PAIN
     Dosage: 1 G, TID
     Dates: start: 2014
  7. SUTENT [Suspect]
     Active Substance: SUNITINIB MALATE
     Indication: CLEAR CELL RENAL CELL CARCINOMA
     Dosage: 50 MG, ONCE DAILY, CYCLIC (4 WEEKS ON FOLLOW BY 2 WEEK OFF)
     Route: 048
     Dates: start: 20160310, end: 20160323
  8. OMEPRAZOLE. [Concomitant]
     Active Substance: OMEPRAZOLE
     Dosage: 20 MG, 1X/DAY (QD)
  9. LORAZEPAM. [Concomitant]
     Active Substance: LORAZEPAM
     Indication: ANXIETY
     Dosage: UNK
     Route: 048
  10. ALDACTONE [Concomitant]
     Active Substance: SPIRONOLACTONE
     Indication: CARDIAC FAILURE
     Dosage: 50 MG, 1X/DAY (HALF DF OF 100 MG)
     Dates: start: 2011

REACTIONS (5)
  - Upper gastrointestinal haemorrhage [Fatal]
  - Anaemia [Fatal]
  - Multiple organ dysfunction syndrome [Fatal]
  - Chronic kidney disease [Fatal]
  - Hypocalcaemia [Fatal]

NARRATIVE: CASE EVENT DATE: 20160329
